FAERS Safety Report 5924312-5 (Version None)
Quarter: 2008Q4

REPORT INFORMATION
  Report Type: 
  Country: None (occurrence: None)
  Receive Date: 20081015
  Receipt Date: 20081003
  Transmission Date: 20090506
  Serious: Yes (Life-Threatening, Hospitalization)
  Sender: FDA-Public Use
  Company Number: GXKR2008DK09564

PATIENT
  Age: 71 Year
  Sex: Female
  Weight: 62 kg

DRUGS (4)
  1. ENALAPRIL MALEATE [Suspect]
     Indication: HYPERTENSION
     Dosage: ORAL
     Route: 048
  2. ACTILYSE ^BOEHRINGER INGELHEIM^ (ALTEPLASE) [Suspect]
     Indication: CEREBRAL THROMBOSIS
     Dosage: 56 MG/DAY, INJECTION NOS
     Dates: start: 20080816, end: 20080816
  3. ZOK-ZID (HYDROCHLOROTHIAZIDE, METOPROLOL) [Concomitant]
  4. IOHEXOL (IOHEXOL) [Concomitant]

REACTIONS (4)
  - ANGIOEDEMA [None]
  - DRUG INTERACTION [None]
  - PHARYNGEAL OEDEMA [None]
  - SWOLLEN TONGUE [None]
